FAERS Safety Report 25571302 (Version 1)
Quarter: 2025Q3

REPORT INFORMATION
  Report Type: Spontaneous
  Country: RS (occurrence: RS)
  Receive Date: 20250717
  Receipt Date: 20250717
  Transmission Date: 20251021
  Serious: Yes (Hospitalization, Other)
  Sender: HIKMA
  Company Number: RS-MLMSERVICE-20250627-PI558035-00089-1

PATIENT
  Age: 72 Year
  Sex: Female

DRUGS (2)
  1. CEFTRIAXONE [Suspect]
     Active Substance: CEFTRIAXONE
     Indication: Urinary tract infection
     Dosage: 2 GRAM, QD
     Route: 042
  2. ACETAMINOPHEN [Concomitant]
     Active Substance: ACETAMINOPHEN
     Indication: Musculoskeletal pain
     Route: 065

REACTIONS (1)
  - Pancytopenia [Recovering/Resolving]
